FAERS Safety Report 15378170 (Version 2)
Quarter: 2018Q3

REPORT INFORMATION
  Report Type: Report from Study
  Country: CA (occurrence: CA)
  Receive Date: 20180913
  Receipt Date: 20180921
  Transmission Date: 20181010
  Serious: Yes (Death)
  Sender: FDA-Public Use
  Company Number: CA-HLSUS-2018-CA-001345

PATIENT
  Age: 52 Year
  Sex: Male
  Weight: 85 kg

DRUGS (3)
  1. PROPRANOLOL [Concomitant]
     Active Substance: PROPRANOLOL HYDROCHLORIDE
     Dosage: 20MG QAM AND 1700 HRS
  2. CLOZAPINE. [Suspect]
     Active Substance: CLOZAPINE
     Dosage: 500MG QHS
     Route: 048
     Dates: start: 20160715, end: 20180906
  3. DULOXETINE. [Concomitant]
     Active Substance: DULOXETINE
     Dosage: 90MG
     Route: 048

REACTIONS (1)
  - Completed suicide [Fatal]

NARRATIVE: CASE EVENT DATE: 20180906
